FAERS Safety Report 25901223 (Version 2)
Quarter: 2025Q4

REPORT INFORMATION
  Report Type: Spontaneous
  Country: CA (occurrence: CA)
  Receive Date: 20251009
  Receipt Date: 20251015
  Transmission Date: 20260117
  Serious: Yes (Hospitalization, Other)
  Sender: PFIZER
  Company Number: CA-PFIZER INC-202500198818

PATIENT
  Age: 42 Year
  Sex: Female

DRUGS (2)
  1. CLINDAMYCIN HYDROCHLORIDE [Suspect]
     Active Substance: CLINDAMYCIN HYDROCHLORIDE
     Indication: Impetigo
     Dosage: 300 MG, 4X/DAY (4 EVERY 1 DAYS)
  2. PREDNISONE [Concomitant]
     Active Substance: PREDNISONE
     Indication: Product used for unknown indication

REACTIONS (10)
  - Atrial fibrillation [Unknown]
  - Ear pain [Unknown]
  - Haematochezia [Unknown]
  - Hypersensitivity [Unknown]
  - Hypoacusis [Unknown]
  - Internal haemorrhage [Unknown]
  - Mouth ulceration [Unknown]
  - Rash [Unknown]
  - Stevens-Johnson syndrome [Unknown]
  - Visual impairment [Unknown]
